FAERS Safety Report 9657130 (Version 1)
Quarter: 2013Q4

REPORT INFORMATION
  Report Type: Spontaneous
  Country: CA (occurrence: CA)
  Receive Date: 20131030
  Receipt Date: 20131030
  Transmission Date: 20140711
  Serious: Yes (Hospitalization, Disabling, Other)
  Sender: FDA-Public Use
  Company Number: CA-WATSON-2013-19186

PATIENT
  Age: 31 Year
  Sex: Male

DRUGS (2)
  1. LIDOCAINE [Suspect]
     Indication: ANAESTHESIA PROCEDURE
     Dosage: 1600 MG(26 MG/KG) OVER 15 MINUTES
     Route: 051
  2. LORAZEPAM [Concomitant]
     Indication: ANAESTHESIA PROCEDURE
     Dosage: 0.5 MG, 2 DOSES
     Route: 060

REACTIONS (12)
  - Depressed level of consciousness [Recovered/Resolved]
  - Hypokinesia [Recovered/Resolved]
  - Aphasia [Recovered/Resolved]
  - Dyspnoea [Recovered/Resolved]
  - Choking sensation [Recovered/Resolved]
  - Hallucination, visual [Recovered/Resolved]
  - Blood pressure increased [Recovered/Resolved]
  - Heart rate increased [Recovered/Resolved]
  - Dysarthria [Recovered/Resolved]
  - Dizziness [Recovered/Resolved]
  - Prescribed overdose [Recovered/Resolved]
  - Incorrect route of drug administration [Recovered/Resolved]
